FAERS Safety Report 4763225-1 (Version None)
Quarter: 2005Q3

REPORT INFORMATION
  Report Type: 
  Country: None (occurrence: None)
  Receive Date: 20050902
  Receipt Date: 20050822
  Transmission Date: 20060218
  Serious: Yes (Hospitalization)
  Sender: FDA-Public Use
  Company Number: HQWYE064323AUG05

PATIENT
  Age: 24 Year
  Sex: Female

DRUGS (1)
  1. ADVIL [Suspect]
     Route: 048

REACTIONS (1)
  - CHOLANGITIS [None]
